FAERS Safety Report 7583410-3 (Version None)
Quarter: 2011Q2

REPORT INFORMATION
  Report Type: 
  Country: None (occurrence: None)
  Receive Date: 20110630
  Receipt Date: 20110616
  Transmission Date: 20111010
  Serious: Yes (Hospitalization, Other)
  Sender: FDA-Public Use
  Company Number: US-BAYER-201031057NA

PATIENT
  Age: 22 Year
  Sex: Female
  Weight: 97.506 kg

DRUGS (15)
  1. SINGULAIR [Concomitant]
  2. FLUCONAZOLE [Concomitant]
  3. VERPAMIL HCL [Concomitant]
  4. YASMIN [Suspect]
     Indication: PREMENSTRUAL SYNDROME
     Dosage: UNK
     Route: 048
     Dates: start: 20041201, end: 20050701
  5. YASMIN [Suspect]
  6. ALBUTEROL [Concomitant]
  7. MONTELUKAST SODIUM [Concomitant]
  8. FORMOTEROL FUMARATE [Concomitant]
  9. METAXALONE [Concomitant]
  10. FEXOFENADINE [Concomitant]
  11. YASMIN [Suspect]
     Indication: ACNE
  12. METFORMIN HCL [Concomitant]
  13. COUMADIN [Concomitant]
  14. LANSOPRAZOLE [Concomitant]
  15. ALLEGRA [Concomitant]

REACTIONS (4)
  - PULMONARY EMBOLISM [None]
  - INJURY [None]
  - PAIN [None]
  - MENTAL DISORDER [None]
